FAERS Safety Report 9263681 (Version 1)
Quarter: 2013Q2

REPORT INFORMATION
  Report Type: Spontaneous
  Country: US (occurrence: US)
  Receive Date: 20130430
  Receipt Date: 20130430
  Transmission Date: 20140414
  Serious: Yes (Other)
  Sender: FDA-Public Use
  Company Number: US-PFIZER INC-2013129947

PATIENT
  Age: 75 Year
  Sex: Female

DRUGS (3)
  1. HYDROXYZINE PAMOATE [Suspect]
     Indication: DERMATOSIS
     Dosage: UNK
  2. DIPHENHYDRAMINE [Suspect]
     Indication: DERMATOSIS
     Dosage: UNK
  3. TRIAMCINOLONE [Concomitant]
     Indication: DERMATOSIS
     Dosage: UNK

REACTIONS (1)
  - Confusional state [Recovering/Resolving]
